FAERS Safety Report 4452504-3 (Version None)
Quarter: 2004Q3

REPORT INFORMATION
  Report Type: 
  Country: None (occurrence: None)
  Receive Date: 20040916
  Receipt Date: 20040907
  Transmission Date: 20050211
  Serious: Yes (Other)
  Sender: FDA-Public Use
  Company Number: 2004042400

PATIENT
  Age: 65 Year
  Sex: Male

DRUGS (2)
  1. NEURONTIN [Suspect]
     Indication: BONE DISORDER
     Dosage: 200 MG (100 MG, 2 IN 1 D), ORAL
     Route: 048
     Dates: start: 20040307
  2. LIMAPROST (LIMAPROST) [Concomitant]

REACTIONS (2)
  - BREAST MASS [None]
  - NIPPLE DISORDER [None]
